FAERS Safety Report 24360293 (Version 1)
Quarter: 2024Q3

REPORT INFORMATION
  Report Type: Spontaneous
  Country: US (occurrence: US)
  Receive Date: 20240925
  Receipt Date: 20240925
  Transmission Date: 20241017
  Serious: No
  Sender: AMGEN
  Company Number: US-AMGEN-USASP2024189740

PATIENT
  Age: 64 Year
  Sex: Female

DRUGS (1)
  1. AIMOVIG [Suspect]
     Active Substance: ERENUMAB-AOOE
     Indication: Migraine
     Dosage: 140 MILLIGRAM, QMO
     Route: 065
     Dates: start: 202206

REACTIONS (5)
  - Product storage error [Unknown]
  - Wrong technique in product usage process [Unknown]
  - Product administration error [Unknown]
  - Skin swelling [Unknown]
  - Migraine [Unknown]

NARRATIVE: CASE EVENT DATE: 20240916
